FAERS Safety Report 23105310 (Version 1)
Quarter: 2023Q4

REPORT INFORMATION
  Report Type: Spontaneous
  Country: US (occurrence: None)
  Receive Date: 20231023
  Receipt Date: 20231023
  Transmission Date: 20240109
  Serious: Yes (Hospitalization)
  Sender: FDA-Public Use
  Company Number: None

PATIENT
  Age: 80 Year
  Sex: Male
  Weight: 91.1 kg

DRUGS (2)
  1. GEMCITABINE HCL [Suspect]
     Active Substance: GEMCITABINE HYDROCHLORIDE
     Dosage: STRENGTH: 10/MG/ML, 220ML
     Route: 042
     Dates: start: 20220830, end: 20230111
  2. ABRAXANE [Suspect]
     Active Substance: PACLITAXEL

REACTIONS (8)
  - Fatigue [None]
  - Orthostatic hypotension [None]
  - Neuropathy peripheral [None]
  - Failure to thrive [None]
  - Hypoaesthesia [None]
  - Hypoaesthesia [None]
  - Back pain [None]
  - Therapy cessation [None]

NARRATIVE: CASE EVENT DATE: 20230209
